FAERS Safety Report 9296617 (Version 2)
Quarter: 2013Q2

REPORT INFORMATION
  Report Type: Spontaneous
  Country: JP (occurrence: JP)
  Receive Date: 20130517
  Receipt Date: 20130523
  Transmission Date: 20140414
  Serious: Yes (Disabling, Other)
  Sender: FDA-Public Use
  Company Number: JP-ASTRAZENECA-2013SE20923

PATIENT
  Sex: Female

DRUGS (1)
  1. FASLODEX [Suspect]
     Indication: BREAST CANCER
     Route: 030

REACTIONS (5)
  - Metastases to bone [Unknown]
  - Metastases to pelvis [Unknown]
  - Hypoaesthesia [Recovered/Resolved with Sequelae]
  - Gait disturbance [Recovered/Resolved with Sequelae]
  - Neuropathy peripheral [Unknown]
